FAERS Safety Report 5171109-2 (Version None)
Quarter: 2006Q4

REPORT INFORMATION
  Report Type: 
  Country: None (occurrence: None)
  Receive Date: 20061213
  Receipt Date: 20060929
  Transmission Date: 20070319
  Serious: Yes (Other)
  Sender: FDA-Public Use
  Company Number: US-ALLERGAN-0605818US

PATIENT
  Sex: Female

DRUGS (2)
  1. BOTOX COSMETIC [Suspect]
     Indication: SKIN WRINKLING
     Dosage: UNK, SINGLE
     Route: 030
     Dates: start: 20060823, end: 20060823
  2. RESTYLANE                          /00567501/ [Concomitant]
     Indication: SKIN WRINKLING
     Dosage: 2 ML, SINGLE
     Dates: start: 20060823, end: 20060823

REACTIONS (17)
  - CYST [None]
  - DRY SKIN [None]
  - ERYTHEMA [None]
  - HERPES ZOSTER [None]
  - IMPAIRED HEALING [None]
  - IMPETIGO [None]
  - INJECTION SITE ATROPHY [None]
  - INJECTION SITE INFECTION [None]
  - INJECTION SITE REACTION [None]
  - INJECTION SITE SCAB [None]
  - INJECTION SITE SCAR [None]
  - MIGRAINE [None]
  - SKIN INDURATION [None]
  - SKIN LESION [None]
  - SKIN NODULE [None]
  - SKIN ULCER [None]
  - SOFT TISSUE NECROSIS [None]
